FAERS Safety Report 22218529 (Version 1)
Quarter: 2023Q2

REPORT INFORMATION
  Report Type: Spontaneous
  Country: CN (occurrence: CN)
  Receive Date: 20230417
  Receipt Date: 20230417
  Transmission Date: 20230721
  Serious: Yes (Hospitalization, Other)
  Sender: FDA-Public Use
  Company Number: CN-ViiV Healthcare Limited-CN2023APC051005

PATIENT

DRUGS (2)
  1. LAMIVUDINE [Suspect]
     Active Substance: LAMIVUDINE
     Indication: Hepatitis B
     Dosage: UNK
     Route: 048
  2. ADEFOVIR DIPIVOXIL [Suspect]
     Active Substance: ADEFOVIR DIPIVOXIL
     Indication: Hepatitis B
     Dosage: 10 MG, 1D

REACTIONS (6)
  - Fanconi syndrome acquired [Recovering/Resolving]
  - Hypophosphataemic osteomalacia [Recovered/Resolved]
  - Musculoskeletal chest pain [Recovering/Resolving]
  - Condition aggravated [Recovering/Resolving]
  - Diabetic nephropathy [Recovering/Resolving]
  - Renal tubular acidosis [Recovering/Resolving]
